FAERS Safety Report 7490977-2 (Version None)
Quarter: 2011Q2

REPORT INFORMATION
  Report Type: 
  Country: None (occurrence: None)
  Receive Date: 20110519
  Receipt Date: 20110510
  Transmission Date: 20111010
  Serious: Yes (Other)
  Sender: FDA-Public Use
  Company Number: FR-ASTRAZENECA-2011SE22236

PATIENT
  Sex: Female

DRUGS (6)
  1. IRESSA [Suspect]
     Indication: LUNG NEOPLASM MALIGNANT
     Route: 048
     Dates: start: 20100315, end: 20101215
  2. PARAPLATIN [Concomitant]
     Indication: LUNG ADENOCARCINOMA
     Dates: start: 20100101
  3. MINOCIN [Suspect]
     Indication: ACNE
     Route: 048
     Dates: start: 20100315, end: 20101215
  4. TELFAST [Concomitant]
     Route: 048
  5. PREDNISONE [Concomitant]
     Indication: POLYMYALGIA RHEUMATICA
     Dates: end: 20100201
  6. ALIMTA [Concomitant]
     Indication: LUNG ADENOCARCINOMA
     Dates: start: 20100101

REACTIONS (1)
  - CYTOLYTIC HEPATITIS [None]
